FAERS Safety Report 23188551 (Version 2)
Quarter: 2023Q4

REPORT INFORMATION
  Report Type: Spontaneous
  Country: US (occurrence: US)
  Receive Date: 20231115
  Receipt Date: 20231211
  Transmission Date: 20240110
  Serious: No
  Sender: FDA-Public Use
  Company Number: US-PFIZER INC-PV202300099334

PATIENT
  Age: 77 Year
  Sex: Male
  Weight: 78.912 kg

DRUGS (3)
  1. MEKTOVI [Suspect]
     Active Substance: BINIMETINIB
     Indication: Metastatic malignant melanoma
     Dosage: 45 MG, 2X/DAY
     Route: 048
  2. BRAFTOVI [Suspect]
     Active Substance: ENCORAFENIB
     Indication: Metastatic malignant melanoma
     Dosage: 75 MG
  3. BRAFTOVI [Suspect]
     Active Substance: ENCORAFENIB
     Dosage: 450 MG, DAILY (75 MG CAPSULE, TAKE 6 CAPSULES BY MOUTH DAILY)
     Route: 048

REACTIONS (4)
  - Hypoacusis [Unknown]
  - Blood creatinine increased [Unknown]
  - Low density lipoprotein increased [Unknown]
  - Weight decreased [Unknown]
